FAERS Safety Report 4967958-3 (Version None)
Quarter: 2006Q1

REPORT INFORMATION
  Report Type: 
  Country: None (occurrence: None)
  Receive Date: 20060201
  Receipt Date: 20051206
  Transmission Date: 20060701
  Serious: No
  Sender: FDA-Public Use
  Company Number: 2005PV005494

PATIENT
  Sex: Female

DRUGS (3)
  1. BYETTA [Suspect]
     Indication: DRUG USE FOR UNKNOWN INDICATION
     Dosage: SEE IMAGE
     Route: 058
     Dates: start: 20051101, end: 20051201
  2. BYETTA [Suspect]
     Indication: DRUG USE FOR UNKNOWN INDICATION
     Dosage: SEE IMAGE
     Route: 058
     Dates: start: 20051202, end: 20051204
  3. BYETTA [Suspect]
     Indication: DRUG USE FOR UNKNOWN INDICATION
     Dosage: SEE IMAGE
     Route: 058
     Dates: start: 20051205

REACTIONS (5)
  - INJECTION SITE ERYTHEMA [None]
  - INJECTION SITE PRURITUS [None]
  - INJECTION SITE SWELLING [None]
  - NASOPHARYNGITIS [None]
  - NAUSEA [None]
